FAERS Safety Report 6204663-X (Version None)
Quarter: 2009Q2

REPORT INFORMATION
  Report Type: 
  Country: None (occurrence: None)
  Receive Date: 20090521
  Receipt Date: 20090429
  Transmission Date: 20091009
  Serious: Yes (Hospitalization)
  Sender: FDA-Public Use
  Company Number: WAES 0904CHN00048

PATIENT
  Age: 58 Year
  Sex: Male

DRUGS (9)
  1. LAROPIPRANT (+) NIACIN [Suspect]
     Indication: HIGH DENSITY LIPOPROTEIN DECREASED
     Dosage: 1 GM/DAILY PO; 2 GM/DAILY PO
     Route: 048
     Dates: end: 20071008
  2. LAROPIPRANT (+) NIACIN [Suspect]
     Indication: HIGH DENSITY LIPOPROTEIN DECREASED
     Dosage: 1 GM/DAILY PO; 2 GM/DAILY PO
     Route: 048
     Dates: start: 20071009, end: 20080409
  3. LAROPIPRANT (+) NIACIN [Suspect]
     Indication: HIGH DENSITY LIPOPROTEIN DECREASED
     Dosage: 1 GM/DAILY PO; 2 GM/DAILY PO
     Route: 048
     Dates: start: 20080423, end: 20081009
  4. LAROPIPRANT (+) NIACIN [Suspect]
     Indication: HIGH DENSITY LIPOPROTEIN DECREASED
     Dosage: 1 GM/DAILY PO; 2 GM/DAILY PO
     Route: 048
     Dates: start: 20081029, end: 20090420
  5. LAROPIPRANT (+) NIACIN [Suspect]
     Indication: HIGH DENSITY LIPOPROTEIN DECREASED
     Dosage: 1 GM/DAILY PO; 2 GM/DAILY PO
     Route: 048
     Dates: start: 20070809
  6. TAB SIMVASTATIN [Suspect]
     Indication: HYPERCHOLESTEROLAEMIA
     Dosage: 40 MG/DAILY PO
     Route: 048
     Dates: start: 20070712, end: 20090420
  7. ACARBOSE [Concomitant]
  8. CLOPIDOGREL BISULFATE [Concomitant]
  9. INSULIN [Concomitant]

REACTIONS (6)
  - BLOOD CREATININE INCREASED [None]
  - BLOOD GLUCOSE INCREASED [None]
  - EPISTAXIS [None]
  - HAEMOGLOBIN DECREASED [None]
  - HEPATITIS [None]
  - PLATELET COUNT DECREASED [None]
